FAERS Safety Report 10190664 (Version 5)
Quarter: 2014Q4

REPORT INFORMATION
  Report Type: Spontaneous
  Country: KW (occurrence: KW)
  Receive Date: 20140523
  Receipt Date: 20141107
  Transmission Date: 20150528
  Serious: Yes (Hospitalization, Other)
  Sender: FDA-Public Use
  Company Number: KW-BIOGENIDEC-2014BI041967

PATIENT
  Age: 36 Year
  Sex: Female

DRUGS (9)
  1. CIPRALEX [Concomitant]
     Active Substance: ESCITALOPRAM OXALATE
  2. TYSABRI [Suspect]
     Active Substance: NATALIZUMAB
     Indication: MULTIPLE SCLEROSIS
     Route: 042
  3. REBIF [Concomitant]
     Active Substance: INTERFERON BETA-1A
  4. TYSABRI [Suspect]
     Active Substance: NATALIZUMAB
     Indication: MULTIPLE SCLEROSIS
     Route: 042
     Dates: start: 20110124, end: 20130227
  5. FAMPYRA [Concomitant]
     Active Substance: DALFAMPRIDINE
  6. METHYL PREDNISOLONE [Concomitant]
     Active Substance: METHYLPREDNISOLONE
  7. RISPERDAL [Concomitant]
     Active Substance: RISPERIDONE
  8. EBIXA [Concomitant]
     Active Substance: MEMANTINE HYDROCHLORIDE
  9. GILENYA [Concomitant]
     Active Substance: FINGOLIMOD HYDROCHLORIDE
     Indication: MULTIPLE SCLEROSIS
     Route: 048
     Dates: start: 201306, end: 201401

REACTIONS (2)
  - Multiple sclerosis [Unknown]
  - Coma [Not Recovered/Not Resolved]

NARRATIVE: CASE EVENT DATE: 20140422
